FAERS Safety Report 9395735 (Version 1)
Quarter: 2013Q3

REPORT INFORMATION
  Report Type: Spontaneous
  Country: GB (occurrence: GB)
  Receive Date: 20130711
  Receipt Date: 20130711
  Transmission Date: 20140515
  Serious: Yes (Disabling)
  Sender: FDA-Public Use
  Company Number: GB-PFIZER INC-2013201167

PATIENT
  Age: 74 Year
  Sex: Male
  Weight: 84 kg

DRUGS (10)
  1. DOXAZOSIN MESILATE [Suspect]
     Dosage: UNK
     Dates: start: 20130403, end: 20130501
  2. DOXAZOSIN MESILATE [Suspect]
     Dosage: UNK
     Dates: start: 20130614
  3. WARFARIN SODIUM [Concomitant]
     Dosage: UNK
     Dates: start: 20130212, end: 20130409
  4. WARFARIN SODIUM [Concomitant]
     Dates: start: 20130520
  5. SIMVASTATIN [Concomitant]
     Dosage: UNK
     Dates: start: 20130403, end: 20130501
  6. SIMVASTATIN [Concomitant]
     Dosage: UNK
     Dates: start: 20130614
  7. BETAMETHASONE VALERATE [Concomitant]
     Dosage: UNK
     Dates: start: 20130427, end: 20130428
  8. BETAMETHASONE VALERATE [Concomitant]
     Dosage: UNK
     Dates: start: 20130513, end: 20130520
  9. DALTEPARIN [Concomitant]
     Dosage: UNK
     Dates: start: 20130516, end: 20130524
  10. CHLORPHENAMINE [Concomitant]
     Dosage: UNK
     Dates: start: 20130627

REACTIONS (3)
  - Angioedema [Not Recovered/Not Resolved]
  - Urticaria [Unknown]
  - Lip swelling [Unknown]
